FAERS Safety Report 4335743-1 (Version None)
Quarter: 2004Q2

REPORT INFORMATION
  Report Type: 
  Country: None (occurrence: None)
  Receive Date: 20040409
  Receipt Date: 20031203
  Transmission Date: 20050107
  Serious: Yes (Hospitalization)
  Sender: FDA-Public Use
  Company Number: PHBS2003JP13705

PATIENT
  Age: 13 Year
  Sex: Male

DRUGS (2)
  1. AREDIA [Suspect]
     Indication: HYPERCALCAEMIA
     Dosage: 15 MG, ONCE/SINGLE
     Route: 042
     Dates: start: 20031114, end: 20031114
  2. AREDIA [Suspect]
     Dosage: 15 MG, ONCE/SINGLE
     Route: 042
     Dates: start: 20031128, end: 20031128

REACTIONS (4)
  - BLOOD CALCIUM DECREASED [None]
  - CROHN'S DISEASE [None]
  - DISEASE PROGRESSION [None]
  - FACIAL PALSY [None]
